FAERS Safety Report 15211588 (Version 1)
Quarter: 2018Q3

REPORT INFORMATION
  Report Type: Report from Study
  Country: EG (occurrence: EG)
  Receive Date: 20180729
  Receipt Date: 20180729
  Transmission Date: 20181010
  Serious: Yes (Other)
  Sender: FDA-Public Use
  Company Number: EG-SAKK-2018SA200740AA

PATIENT
  Age: 6 Year
  Sex: Female

DRUGS (2)
  1. INSULIN GLARGINE [Suspect]
     Active Substance: INSULIN GLARGINE
     Indication: TYPE 1 DIABETES MELLITUS
     Dosage: 10 IU, QD
     Route: 058
     Dates: start: 201803
  2. HUMALOG [Concomitant]
     Active Substance: INSULIN LISPRO
     Dosage: 5IU, 5IU + 3IU

REACTIONS (2)
  - Hyperglycaemia [Not Recovered/Not Resolved]
  - Tooth abscess [Recovered/Resolved]

NARRATIVE: CASE EVENT DATE: 20180713
